FAERS Safety Report 8923193 (Version 2)
Quarter: 2012Q4

REPORT INFORMATION
  Report Type: 
  Country: ID (occurrence: ID)
  Receive Date: 20121124
  Receipt Date: 20121129
  Transmission Date: 20130627
  Serious: Yes (Death, Hospitalization)
  Sender: FDA-Public Use
  Company Number: PHHY2012ID106652

PATIENT
  Sex: Female

DRUGS (1)
  1. TASIGNA [Suspect]
     Indication: CHRONIC MYELOID LEUKAEMIA
     Dosage: 200 mg, 2 x 2
     Route: 048
     Dates: end: 20120928

REACTIONS (5)
  - Splenomegaly [Fatal]
  - Abdominal pain [Fatal]
  - Gastrointestinal infection [Fatal]
  - Sepsis [Fatal]
  - Blast crisis in myelogenous leukaemia [Fatal]
